FAERS Safety Report 24107565 (Version 1)
Quarter: 2024Q3

REPORT INFORMATION
  Report Type: Spontaneous
  Country: US (occurrence: US)
  Receive Date: 20240718
  Receipt Date: 20240718
  Transmission Date: 20241017
  Serious: No
  Sender: AVERITAS
  Company Number: US-GRUNENTHAL-2024-116702

PATIENT
  Sex: Female

DRUGS (2)
  1. QUTENZA [Suspect]
     Active Substance: CAPSAICIN
     Indication: Nerve injury
     Dosage: 2 DOSAGE FORM, ONCE
     Route: 061
     Dates: start: 20240228, end: 20240228
  2. QUTENZA [Suspect]
     Active Substance: CAPSAICIN
     Indication: Neuropathy peripheral
     Dosage: 2 DOSAGE FORM, ONCE
     Route: 061
     Dates: start: 20240228, end: 20240228

REACTIONS (7)
  - Application site pain [Unknown]
  - Nausea [Unknown]
  - Dizziness [Unknown]
  - Malaise [Unknown]
  - Nasal discomfort [Unknown]
  - Eye irritation [Unknown]
  - Accidental exposure to product [Unknown]
